FAERS Safety Report 9743359 (Version 1)
Quarter: 2013Q4

REPORT INFORMATION
  Report Type: Spontaneous
  Country: US (occurrence: US)
  Receive Date: 20131210
  Receipt Date: 20131210
  Transmission Date: 20140711
  Serious: Yes (Other)
  Sender: FDA-Public Use
  Company Number: US-TEVA-379518USA

PATIENT
  Age: 24 Year
  Sex: Female
  Weight: 46.76 kg

DRUGS (1)
  1. PARAGARD 380A [Suspect]
     Indication: CONTRACEPTION
     Route: 015
     Dates: start: 20121130, end: 20130104

REACTIONS (4)
  - Medical device complication [Recovered/Resolved]
  - Device dislocation [Recovered/Resolved]
  - Pregnancy with contraceptive device [Unknown]
  - Menstruation delayed [Not Recovered/Not Resolved]
